FAERS Safety Report 4627442-3 (Version None)
Quarter: 2005Q2

REPORT INFORMATION
  Report Type: 
  Country: None (occurrence: None)
  Receive Date: 20050405
  Receipt Date: 20050323
  Transmission Date: 20051028
  Serious: Yes (Other)
  Sender: FDA-Public Use
  Company Number: 2005048443

PATIENT

DRUGS (2)
  1. BEXTRA [Suspect]
     Indication: BACK DISORDER
     Dosage: 20 MG
     Dates: start: 20041101
  2. VICODIN [Concomitant]

REACTIONS (1)
  - SURGERY [None]
